FAERS Safety Report 12159103 (Version 1)
Quarter: 2016Q1

REPORT INFORMATION
  Report Type: Other
  Country: GB (occurrence: GB)
  Receive Date: 20160308
  Receipt Date: 20160308
  Transmission Date: 20160526
  Serious: Yes (Hospitalization)
  Sender: FDA-Public Use
  Company Number: GB-MYLANLABS-2016M1008724

PATIENT

DRUGS (5)
  1. ATORVASTATIN [Concomitant]
     Active Substance: ATORVASTATIN
     Dosage: 20 MG, QD (AT NIGHT)
  2. NAPROXEN. [Suspect]
     Active Substance: NAPROXEN
     Indication: FASCIITIS
     Dosage: UNK
  3. PARACETAMOL [Concomitant]
     Active Substance: ACETAMINOPHEN
     Dosage: 1 G, UNK
  4. PROPRANOLOL [Concomitant]
     Active Substance: PROPRANOLOL\PROPRANOLOL HYDROCHLORIDE
     Dosage: 40 MG, QD (AT NIGHT)
  5. LEVOTHYROXINE. [Concomitant]
     Active Substance: LEVOTHYROXINE
     Dosage: 25 ?G, QD

REACTIONS (5)
  - Constipation [Unknown]
  - Gastritis [Recovering/Resolving]
  - Haemorrhoids [Unknown]
  - Melaena [Unknown]
  - Abdominal pain [Unknown]
